FAERS Safety Report 10903756 (Version 3)
Quarter: 2015Q1

REPORT INFORMATION
  Report Type: Report from Study
  Country: CA (occurrence: CA)
  Receive Date: 20150311
  Receipt Date: 20150318
  Transmission Date: 20150721
  Serious: Yes (Other)
  Sender: FDA-Public Use
  Company Number: CA-ROCHE-1546367

PATIENT
  Sex: Female

DRUGS (1)
  1. ERIVEDGE [Suspect]
     Active Substance: VISMODEGIB
     Indication: BASAL CELL CARCINOMA
     Dosage: DOSAGE AND FREQUENCY UNKNOWN
     Route: 048

REACTIONS (12)
  - Rash [Unknown]
  - Liver disorder [Unknown]
  - Mass [Unknown]
  - Dry skin [Unknown]
  - Speech disorder [Unknown]
  - Skin disorder [Unknown]
  - Skin discolouration [Unknown]
  - Wound [Unknown]
  - Myalgia [Unknown]
  - Joint stiffness [Unknown]
  - Pruritus [Unknown]
  - Tremor [Unknown]
